FAERS Safety Report 10541384 (Version 1)
Quarter: 2014Q4

REPORT INFORMATION
  Report Type: Spontaneous
  Country: US (occurrence: None)
  Receive Date: 20141010
  Receipt Date: 20141010
  Transmission Date: 20150529
  Serious: No
  Sender: FDA-Public Use
  Company Number: 163-POMAL-14051675

PATIENT
  Age: 53 Year
  Sex: Female
  Weight: 59 kg

DRUGS (7)
  1. POMALYST [Suspect]
     Active Substance: POMALIDOMIDE
     Indication: PLASMA CELL MYELOMA
     Dosage: 21 IN 21 D
     Route: 048
     Dates: start: 20140408
  2. ROCEPHIN [Concomitant]
     Active Substance: CEFTRIAXONE SODIUM
  3. ASPIRIN (ACETYLSALICYLIC ACID) [Concomitant]
     Active Substance: ASPIRIN
  4. LEVOTHYROXINE SODIUM (LEVOTHYROXINE SODIUM) [Concomitant]
  5. QUASENSE (EUGYNON) [Concomitant]
  6. ONDANSETRON HCL (ONDANSETRON HYDROCHLORIDE) [Concomitant]
     Active Substance: ONDANSETRON HYDROCHLORIDE
  7. DEXAMETHASONE (DEXAMETHASONE) [Concomitant]
     Active Substance: DEXAMETHASONE

REACTIONS (6)
  - Mucous stools [None]
  - Constipation [None]
  - Faeces discoloured [None]
  - Contusion [None]
  - Nasopharyngitis [None]
  - Diarrhoea [None]

NARRATIVE: CASE EVENT DATE: 2014
